FAERS Safety Report 5493139-3 (Version None)
Quarter: 2007Q4

REPORT INFORMATION
  Report Type: 
  Country: None (occurrence: None)
  Receive Date: 20071022
  Receipt Date: 20071022
  Transmission Date: 20080405
  Serious: Yes (Other)
  Sender: FDA-Public Use
  Company Number: None

PATIENT
  Age: 53 Year
  Sex: Male
  Weight: 145.151 kg

DRUGS (5)
  1. CVS PHARMACY IBUPROFEN 200 MG CAPLETS  500 CAPLET BOTTLE [Suspect]
     Indication: COMPLEX REGIONAL PAIN SYNDROME
     Dosage: 400 MG 4 TIMES A DAY
     Dates: start: 20070901
  2. CVS PHARMACY IBUPROFEN 200 MG CAPLETS  500 CAPLET BOTTLE [Suspect]
     Indication: FIBROMYALGIA
     Dosage: 400 MG 4 TIMES A DAY
     Dates: start: 20070901
  3. CVS PHARMACY IBUPROFEN 200 MG CAPLETS  500 CAPLET BOTTLE [Suspect]
     Indication: COMPLEX REGIONAL PAIN SYNDROME
     Dosage: 400 MG 4 TIMES A DAY
     Dates: start: 20071001
  4. CVS PHARMACY IBUPROFEN 200 MG CAPLETS  500 CAPLET BOTTLE [Suspect]
     Indication: FIBROMYALGIA
     Dosage: 400 MG 4 TIMES A DAY
     Dates: start: 20071001
  5. CVS PHARMACY IBUPROFEN 200 MG CAPLETS 500 CAPLET BOTTLE [Suspect]

REACTIONS (2)
  - DRUG INEFFECTIVE [None]
  - PHARMACEUTICAL PRODUCT COUNTERFEIT [None]
